FAERS Safety Report 20006918 (Version 1)
Quarter: 2021Q4

REPORT INFORMATION
  Report Type: Spontaneous
  Country: CN (occurrence: CN)
  Receive Date: 20211028
  Receipt Date: 20211028
  Transmission Date: 20220303
  Serious: Yes (Other)
  Sender: FDA-Public Use
  Company Number: CN-BLUEPRINT MEDICINES CORPORATION-SO-CN-2021-001656

PATIENT
  Sex: Female

DRUGS (1)
  1. GAVRETO [Suspect]
     Active Substance: PRALSETINIB
     Indication: Lung adenocarcinoma stage IV
     Route: 048
     Dates: start: 2021

REACTIONS (8)
  - Metastases to lymph nodes [Unknown]
  - Metastatic neoplasm [Unknown]
  - Pleural effusion [Recovering/Resolving]
  - Heart rate increased [Unknown]
  - Atelectasis [Unknown]
  - Lymphadenopathy [Unknown]
  - Lung opacity [Unknown]
  - Pneumonitis [Unknown]

NARRATIVE: CASE EVENT DATE: 20210901
